FAERS Safety Report 12391936 (Version 4)
Quarter: 2016Q4

REPORT INFORMATION
  Report Type: Report from Study
  Country: US (occurrence: US)
  Receive Date: 20160523
  Receipt Date: 20161128
  Transmission Date: 20170207
  Serious: Yes (Death, Hospitalization, Other)
  Sender: FDA-Public Use
  Company Number: US-AMGEN-USASL2016063022

PATIENT
  Age: 90 Year
  Sex: Female
  Weight: 65.31 kg

DRUGS (47)
  1. PROLIA [Suspect]
     Active Substance: DENOSUMAB
     Indication: PRODUCT USED FOR UNKNOWN INDICATION
     Dosage: 60 MG/ML, Q6MO(TWICE A YEAR)
     Route: 058
     Dates: start: 20150429, end: 20150429
  2. SODIUM CHLORIDE. [Concomitant]
     Active Substance: SODIUM CHLORIDE
  3. ACETAMINOPHEN. [Concomitant]
     Active Substance: ACETAMINOPHEN
     Dosage: 500 MG, AS NECESSARY
  4. MEROPENEM. [Concomitant]
     Active Substance: MEROPENEM
     Dosage: 50 ML, UNK
     Route: 042
     Dates: start: 20160502
  5. ZOSYN [Concomitant]
     Active Substance: PIPERACILLIN SODIUM\TAZOBACTAM SODIUM
  6. GABAPENTIN. [Concomitant]
     Active Substance: GABAPENTIN
     Dosage: 200 MG, HS
     Route: 048
  7. COLACE [Concomitant]
     Active Substance: DOCUSATE SODIUM
     Dosage: 100 MG, QD
     Route: 048
     Dates: start: 20160502
  8. NITROSTAT [Concomitant]
     Active Substance: NITROGLYCERIN
  9. NITRO BID [Concomitant]
  10. VANCOMYCIN [Concomitant]
     Active Substance: VANCOMYCIN
  11. DOCUSATE SODIUM. [Concomitant]
     Active Substance: DOCUSATE SODIUM
     Dosage: 100 MG, QD, PRN
     Route: 048
  12. FLUTICASONE PROPIONATE. [Concomitant]
     Active Substance: FLUTICASONE PROPIONATE
     Dosage: 110 MUG, QD
  13. LANTUS [Concomitant]
     Active Substance: INSULIN GLARGINE
     Dosage: 8 UNIT, UNK
     Route: 058
  14. DUONEB [Concomitant]
     Active Substance: ALBUTEROL SULFATE\IPRATROPIUM BROMIDE
     Dosage: 2.5 UNK, Q2H PRN
  15. PROPAFENONE HCL [Concomitant]
     Active Substance: PROPAFENONE HYDROCHLORIDE
     Dosage: 225 MG, TID
     Route: 048
  16. PROPAFENONE HCL [Concomitant]
     Active Substance: PROPAFENONE HYDROCHLORIDE
     Dosage: 10 MG, BID
     Route: 048
  17. DIPRIVAN [Concomitant]
     Active Substance: PROPOFOL
  18. CALCIUM CARBONATE/VITAMIN D3 [Concomitant]
     Active Substance: CALCIUM CARBONATE\CHOLECALCIFEROL
     Dosage: UNK UNK, BID
     Route: 048
  19. PROCTOSOL HC [Concomitant]
     Dosage: UNK UNK, BID
  20. HUMALOG [Concomitant]
     Active Substance: INSULIN LISPRO
     Dosage: (2-10) UNIT, UNK
     Route: 058
  21. MILK OF MAGNESIA [Concomitant]
     Active Substance: MAGNESIUM HYDROXIDE
     Dosage: 30 ML, AS NECESSARY
     Route: 048
  22. NITROGLYCERIN. [Concomitant]
     Active Substance: NITROGLYCERIN
     Dosage: 0.4 MG, AS NECESSARY
  23. OCUVITE [Concomitant]
     Active Substance: VITAMINS
     Dosage: 1 DF, QD
     Route: 048
  24. PEPCID [Concomitant]
     Active Substance: FAMOTIDINE
  25. LEVEMIR [Concomitant]
     Active Substance: INSULIN DETEMIR
  26. FENTANYL. [Concomitant]
     Active Substance: FENTANYL
  27. PROPAFENONE HCL [Concomitant]
     Active Substance: PROPAFENONE HYDROCHLORIDE
     Dosage: 20 MG, QD
     Route: 048
  28. GLUCOSCAN [Concomitant]
     Active Substance: TECHNETIUM TC-99M GLUCEPTATE
     Dosage: UNK
     Dates: start: 20160502
  29. DEXTROSE. [Concomitant]
     Active Substance: DEXTROSE
     Indication: HYPOGLYCAEMIA
     Dosage: 50 ML, UNK
     Dates: start: 20160502
  30. GLUCAGEN [Concomitant]
     Active Substance: GLUCAGON HYDROCHLORIDE
     Indication: HYPOGLYCAEMIA
     Dosage: 1 MG, UNK
     Route: 058
     Dates: start: 20160502
  31. SOLU-MEDROL [Concomitant]
     Active Substance: METHYLPREDNISOLONE SODIUM SUCCINATE
  32. VASOPRESSIN. [Concomitant]
     Active Substance: VASOPRESSIN
  33. MYCAMINE [Concomitant]
     Active Substance: MICAFUNGIN SODIUM
  34. VITAMIN D3 [Concomitant]
     Active Substance: CHOLECALCIFEROL
     Dosage: 2000 UNIT, QD
     Route: 048
  35. PRADAXA [Concomitant]
     Active Substance: DABIGATRAN ETEXILATE MESYLATE
     Dosage: 150 MG, BID
     Route: 048
  36. LISINOPRIL. [Concomitant]
     Active Substance: LISINOPRIL
     Dosage: 5 MG, QD
     Route: 048
  37. PREDNISONE. [Concomitant]
     Active Substance: PREDNISONE
     Dosage: 20 MG, QD
     Route: 048
  38. RANITIDINE HCL [Concomitant]
     Active Substance: RANITIDINE HYDROCHLORIDE
     Dosage: 150 MG, BID
     Route: 048
  39. TYLENOL [Concomitant]
     Active Substance: ACETAMINOPHEN
     Dosage: 500 MG, TID
     Route: 048
     Dates: start: 20160502
  40. NORCO [Concomitant]
     Active Substance: ACETAMINOPHEN\HYDROCODONE BITARTRATE
     Indication: PAIN
     Dosage: UNK UNK, QD
     Route: 048
     Dates: start: 20160502
  41. GLUTOSE [Concomitant]
     Active Substance: DEXTROSE
     Indication: HYPOGLYCAEMIA
     Dosage: 15 G, UNK
     Route: 048
  42. AMIODARONE [Suspect]
     Active Substance: AMIODARONE
     Indication: PRODUCT USED FOR UNKNOWN INDICATION
     Dosage: UNK
     Route: 065
  43. PREMARIN [Concomitant]
     Active Substance: ESTROGENS, CONJUGATED
     Dosage: 30 G, 2 TIMES/WK
  44. CORDARONE [Concomitant]
     Active Substance: AMIODARONE HYDROCHLORIDE
  45. LORTAB [Concomitant]
     Active Substance: ACETAMINOPHEN\HYDROCODONE BITARTRATE
     Dosage: (5-35) MG, Q4H PRN
     Route: 048
  46. MAGNESIUM [Concomitant]
     Active Substance: MAGNESIUM
     Dosage: 800 MG, BID
     Route: 048
  47. LEVOPHED [Concomitant]
     Active Substance: NOREPINEPHRINE BITARTRATE

REACTIONS (20)
  - Atrial fibrillation [Unknown]
  - Sinusitis [Unknown]
  - Orthostatic hypotension [Unknown]
  - Pulmonary hypertension [Unknown]
  - Dyspnoea [Fatal]
  - Malaise [Unknown]
  - Pneumonia [Unknown]
  - Memory impairment [Unknown]
  - Addison^s disease [Unknown]
  - Malnutrition [Unknown]
  - Urinary tract infection [Unknown]
  - Interstitial lung disease [Unknown]
  - Escherichia sepsis [Not Recovered/Not Resolved]
  - Atrial flutter [Unknown]
  - Urosepsis [Unknown]
  - Myopathy [Unknown]
  - Hyperglycaemia [Unknown]
  - Asthenia [Unknown]
  - Respiratory failure [Not Recovered/Not Resolved]
  - Myalgia [Unknown]

NARRATIVE: CASE EVENT DATE: 20151214
